FAERS Safety Report 18039800 (Version 1)
Quarter: 2020Q3

REPORT INFORMATION
  Report Type: Spontaneous
  Country: DK (occurrence: DK)
  Receive Date: 20200717
  Receipt Date: 20200717
  Transmission Date: 20201103
  Serious: Yes (Other)
  Sender: FDA-Public Use
  Company Number: PHHY2018DK149759

PATIENT
  Age: 79 Year
  Sex: Male
  Weight: 71 kg

DRUGS (4)
  1. ENTOCORT [Concomitant]
     Active Substance: BUDESONIDE
     Dosage: DOSIS: 1 VED BEHOV
     Route: 048
     Dates: start: 200406
  2. ENTOCORT [Concomitant]
     Active Substance: BUDESONIDE
     Indication: COLITIS MICROSCOPIC
     Dosage: 3 MG, UNK (DOSIS: 1 VED BEHOV)
     Route: 048
  3. METFORMIN [Concomitant]
     Active Substance: METFORMIN HYDROCHLORIDE
     Indication: TYPE 2 DIABETES MELLITUS
     Dosage: 1000 MG, QD (STYRKE: 500MG)
     Route: 048
     Dates: start: 200406
  4. METOPROLOLSUCCINAT ^HEXAL^ [Suspect]
     Active Substance: METOPROLOL SUCCINATE
     Indication: HYPERTENSION
     Dosage: 50 MG, QD
     Route: 048
     Dates: start: 20180409, end: 20180706

REACTIONS (2)
  - Visual impairment [Recovering/Resolving]
  - Dry age-related macular degeneration [Unknown]

NARRATIVE: CASE EVENT DATE: 201804
